FAERS Safety Report 19749822 (Version 1)
Quarter: 2021Q3

REPORT INFORMATION
  Report Type: Spontaneous
  Country: CA (occurrence: CA)
  Receive Date: 20210826
  Receipt Date: 20210826
  Transmission Date: 20211014
  Serious: No
  Sender: FDA-Public Use
  Company Number: None

PATIENT
  Age: 83 Year
  Sex: Female
  Weight: 89.55 kg

DRUGS (1)
  1. PROLIA [Suspect]
     Active Substance: DENOSUMAB
     Indication: OSTEOARTHRITIS
     Dosage: ?          OTHER FREQUENCY:EVERY 6 MONTHS;OTHER ROUTE:INJECTION IN UNDER ARM?
     Dates: start: 20210803

REACTIONS (4)
  - Loss of personal independence in daily activities [None]
  - Rash [None]
  - Impaired healing [None]
  - Pain in extremity [None]

NARRATIVE: CASE EVENT DATE: 20210803
